FAERS Safety Report 5819525-7 (Version None)
Quarter: 2008Q3

REPORT INFORMATION
  Report Type: 
  Country: None (occurrence: None)
  Receive Date: 20080723
  Receipt Date: 20080707
  Transmission Date: 20090109
  Serious: Yes (Disabling)
  Sender: FDA-Public Use
  Company Number: GR-BAYER-200821959GPV

PATIENT
  Age: 81 Year
  Sex: Female
  Weight: 60 kg

DRUGS (1)
  1. AVELOX [Suspect]
     Indication: PNEUMONIA
     Dosage: TOTAL DAILY DOSE: 400 MG  UNIT DOSE: 400 MG
     Route: 048
     Dates: start: 20080620, end: 20080704

REACTIONS (1)
  - VISUAL FIELD DEFECT [None]
